FAERS Safety Report 9379383 (Version 2)
Quarter: 2013Q3

REPORT INFORMATION
  Report Type: Other
  Country: US (occurrence: US)
  Receive Date: 20130702
  Receipt Date: 20130827
  Transmission Date: 20140515
  Serious: Yes (Other)
  Sender: FDA-Public Use
  Company Number: US-SHIRE-ALL1-2013-04339

PATIENT
  Age: 67 Year
  Sex: Male
  Weight: 78.91 kg

DRUGS (5)
  1. VPRIV [Suspect]
     Indication: GAUCHER^S DISEASE
     Dosage: 4800 IU, OTHER(12 VIALS BI-MONTHLY)
     Route: 041
     Dates: start: 20100509
  2. PROZAC [Concomitant]
     Indication: DEPRESSION
     Dosage: 20 MG, UNKNOWN
     Route: 065
  3. FOSAMAX [Concomitant]
     Indication: OSTEOPOROSIS
     Dosage: 70 MG, UNKNOWN
     Route: 065
  4. COQ10                              /00517201/ [Concomitant]
     Indication: PRODUCT USED FOR UNKNOWN INDICATION
     Dosage: UNK, UNKNOWN
     Route: 065
  5. OMEGA 3                            /01334101/ [Concomitant]
     Indication: PRODUCT USED FOR UNKNOWN INDICATION
     Dosage: UNK, UNKNOWN
     Route: 065

REACTIONS (2)
  - Retinal detachment [Recovering/Resolving]
  - Infusion related reaction [Recovering/Resolving]
